FAERS Safety Report 7530223-4 (Version None)
Quarter: 2011Q2

REPORT INFORMATION
  Report Type: 
  Country: None (occurrence: None)
  Receive Date: 20110606
  Receipt Date: 20110606
  Transmission Date: 20111010
  Serious: Yes (Life-Threatening, Other)
  Sender: FDA-Public Use
  Company Number: None

PATIENT
  Age: 42 Year
  Sex: Female
  Weight: 52.1637 kg

DRUGS (2)
  1. CLORAZEPATE DIPOTASSIUM [Suspect]
     Indication: MUSCLE SPASMS
     Dosage: USED 1/4 TABLET OF THIS LOT 7.5 1 TWICE A DAY MOUTH
     Route: 048
     Dates: start: 20110421
  2. CLORAZEPATE DIPOTASSIUM [Suspect]
     Indication: ANXIETY
     Dosage: USED 1/4 TABLET OF THIS LOT 7.5 1 TWICE A DAY MOUTH
     Route: 048
     Dates: start: 20110421

REACTIONS (10)
  - ASTHMA [None]
  - TOOTHACHE [None]
  - SINUS CONGESTION [None]
  - HYPERSENSITIVITY [None]
  - ABDOMINAL DISCOMFORT [None]
  - EAR PAIN [None]
  - EYE PRURITUS [None]
  - NERVOUSNESS [None]
  - ANXIETY [None]
  - HEADACHE [None]
